FAERS Safety Report 12388816 (Version 1)
Quarter: 2016Q2

REPORT INFORMATION
  Report Type: Other
  Country: TR (occurrence: TR)
  Receive Date: 20160520
  Receipt Date: 20160520
  Transmission Date: 20160815
  Serious: Yes (Other)
  Sender: FDA-Public Use
  Company Number: TR-EMD SERONO-8084562

PATIENT
  Age: 47 Year
  Sex: Female

DRUGS (2)
  1. ACITRETIN. [Concomitant]
     Active Substance: ACITRETIN
     Indication: MYCOSIS FUNGOIDES
  2. INTERFERON BETA NOS [Suspect]
     Active Substance: INTERFERON BETA
     Indication: MYCOSIS FUNGOIDES
     Dosage: 3 MIU

REACTIONS (2)
  - Off label use [Unknown]
  - Mycosis fungoides stage IV [Unknown]
